FAERS Safety Report 7028767-7 (Version None)
Quarter: 2010Q4

REPORT INFORMATION
  Report Type: 
  Country: None (occurrence: None)
  Receive Date: 20101004
  Receipt Date: 20101004
  Transmission Date: 20110411
  Serious: Yes (Hospitalization)
  Sender: FDA-Public Use
  Company Number: None

PATIENT
  Age: 69 Year
  Sex: Female
  Weight: 49 kg

DRUGS (9)
  1. EXELON [Suspect]
     Indication: DEMENTIA ALZHEIMER'S TYPE
     Dosage: 4.6MG DAILY TRANSDERMAL
     Route: 062
  2. CALCIUM CARBONATE [Concomitant]
  3. VITAMIN E [Concomitant]
  4. LEVOXYL [Concomitant]
  5. MULTI-VITAMIN [Concomitant]
  6. SEROQUEL [Concomitant]
  7. ASACOL [Concomitant]
  8. XANAX [Concomitant]
  9. VITABEE [Concomitant]

REACTIONS (5)
  - DRUG INTOLERANCE [None]
  - DYSARTHRIA [None]
  - LETHARGY [None]
  - MUSCULAR WEAKNESS [None]
  - TRANSIENT ISCHAEMIC ATTACK [None]
